FAERS Safety Report 12256222 (Version 3)
Quarter: 2016Q3

REPORT INFORMATION
  Report Type: Spontaneous
  Country: FR (occurrence: FR)
  Receive Date: 20160412
  Receipt Date: 20160720
  Transmission Date: 20161109
  Serious: Yes (Disabling, Other)
  Sender: FDA-Public Use
  Company Number: FR-MYLANLABS-2016M1014416

PATIENT

DRUGS (2)
  1. MYLAN-ANASTROZOLE [Suspect]
     Active Substance: ANASTROZOLE
     Indication: LUNG NEOPLASM MALIGNANT
  2. MYLAN-ANASTROZOLE [Suspect]
     Active Substance: ANASTROZOLE
     Indication: HEPATIC CANCER

REACTIONS (6)
  - Constipation [Unknown]
  - Off label use [Unknown]
  - Arthralgia [Unknown]
  - Decreased appetite [Unknown]
  - Hypersomnia [Unknown]
  - Fatigue [Unknown]

NARRATIVE: CASE EVENT DATE: 2016
